FAERS Safety Report 10598313 (Version 3)
Quarter: 2015Q2

REPORT INFORMATION
  Report Type: Spontaneous
  Country: US (occurrence: US)
  Receive Date: 20141121
  Receipt Date: 20150604
  Transmission Date: 20150821
  Serious: Yes (Hospitalization)
  Sender: FDA-Public Use
  Company Number: US-BAYER-2014-171825

PATIENT
  Age: 26 Year
  Sex: Female
  Weight: 54 kg

DRUGS (2)
  1. MIRENA [Suspect]
     Active Substance: LEVONORGESTREL
     Indication: CONTRACEPTION
     Dosage: 20 MCG/24HR, CONT
     Route: 015
     Dates: start: 20101020, end: 20130131
  2. ADVIL [Concomitant]
     Active Substance: IBUPROFEN
     Dosage: UNK UNK, PRN
     Dates: start: 20130131

REACTIONS (17)
  - Device failure [None]
  - Injury [None]
  - Emotional distress [None]
  - Scar [None]
  - Device issue [None]
  - Pregnancy with contraceptive device [None]
  - Drug ineffective [None]
  - Anxiety [None]
  - Device dislocation [None]
  - Procedural pain [None]
  - Device defective [None]
  - Hormone level abnormal [Not Recovered/Not Resolved]
  - Uterine cervical pain [Not Recovered/Not Resolved]
  - Depression [None]
  - Pain [None]
  - Medical device discomfort [None]
  - Back pain [Not Recovered/Not Resolved]

NARRATIVE: CASE EVENT DATE: 201011
